FAERS Safety Report 6439244-6 (Version None)
Quarter: 2009Q4

REPORT INFORMATION
  Report Type: 
  Country: None (occurrence: None)
  Receive Date: 20091113
  Receipt Date: 20091102
  Transmission Date: 20100525
  Serious: Yes (Other)
  Sender: FDA-Public Use
  Company Number: GB-NOVOPROD-300274

PATIENT
  Sex: Male
  Weight: 77.7 kg

DRUGS (3)
  1. NOVOLOG MIX 70/30 [Suspect]
     Indication: TYPE 2 DIABETES MELLITUS
     Dosage: UNK IU, QD
     Dates: start: 20060216
  2. CHEMOTHERAPEUTICS NOS [Concomitant]
     Indication: DRUG USE FOR UNKNOWN INDICATION
     Dosage: UNK
     Dates: start: 20060216
  3. VITAMIN B-12 [Concomitant]
     Indication: ASTHMA

REACTIONS (2)
  - PARAESTHESIA [None]
  - RASH [None]
